FAERS Safety Report 4462532-X (Version None)
Quarter: 2004Q3

REPORT INFORMATION
  Report Type: 
  Country: None (occurrence: None)
  Receive Date: 20040929
  Receipt Date: 20040921
  Transmission Date: 20050211
  Serious: Yes (Hospitalization)
  Sender: FDA-Public Use
  Company Number: NO-MERCK-0409NOR00015

PATIENT
  Age: 64 Year
  Sex: Male

DRUGS (2)
  1. HYZAAR [Suspect]
     Indication: HYPERTENSION
     Route: 048
     Dates: end: 20040819
  2. MAREVAN [Suspect]
     Indication: PULMONARY EMBOLISM
     Route: 048
     Dates: start: 20040301, end: 20040816

REACTIONS (1)
  - HEPATITIS ACUTE [None]
